FAERS Safety Report 12063920 (Version 1)
Quarter: 2016Q1

REPORT INFORMATION
  Report Type: Spontaneous
  Country: US (occurrence: US)
  Receive Date: 20160210
  Receipt Date: 20160210
  Transmission Date: 20160526
  Serious: No
  Sender: FDA-Public Use
  Company Number: US-ELI_LILLY_AND_COMPANY-US201601005911

PATIENT
  Sex: Female

DRUGS (3)
  1. HUMALOG [Suspect]
     Active Substance: INSULIN LISPRO
     Indication: TYPE 2 DIABETES MELLITUS
     Dosage: 6 U, BID
     Route: 065
  2. NOVOLIN [Concomitant]
     Active Substance: INSULIN HUMAN
     Dosage: 25 U, UNKNOWN
     Route: 065
  3. NOVOLIN [Concomitant]
     Active Substance: INSULIN HUMAN
     Dosage: 20 U, EACH EVENING
     Route: 065

REACTIONS (2)
  - Infection [Unknown]
  - Nasopharyngitis [Unknown]
